FAERS Safety Report 5203730-7 (Version None)
Quarter: 2007Q1

REPORT INFORMATION
  Report Type: 
  Country: None (occurrence: None)
  Receive Date: 20070108
  Receipt Date: 20070108
  Transmission Date: 20070707
  Serious: Yes (Hospitalization)
  Sender: FDA-Public Use
  Company Number: None

PATIENT
  Age: 22 Year
  Sex: Female
  Weight: 49.8957 kg

DRUGS (4)
  1. AVELOX [Suspect]
     Indication: URINARY TRACT INFECTION
     Dosage: 400MG ONCE PER DAY PO
     Route: 048
     Dates: start: 20061208, end: 20061213
  2. VALTREX [Concomitant]
  3. EX-LAX [Concomitant]
  4. BIO-BEADS [Concomitant]

REACTIONS (12)
  - ASTHENIA [None]
  - CONVULSION [None]
  - DIZZINESS [None]
  - DYSGEUSIA [None]
  - FALL [None]
  - HEADACHE [None]
  - MENINGITIS ASEPTIC [None]
  - MENTAL DISORDER [None]
  - RETROGRADE AMNESIA [None]
  - SCREAMING [None]
  - SPEECH DISORDER [None]
  - SYNCOPE [None]
